FAERS Safety Report 14332003 (Version 1)
Quarter: 2017Q4

REPORT INFORMATION
  Report Type: Report from Study
  Country: US (occurrence: US)
  Receive Date: 20171228
  Receipt Date: 20171228
  Transmission Date: 20180321
  Serious: Yes (Other)
  Sender: FDA-Public Use
  Company Number: US-JNJFOC-20171234829

PATIENT
  Sex: Female

DRUGS (14)
  1. IRBESARTAN. [Concomitant]
     Active Substance: IRBESARTAN
  2. MOTRIN [Concomitant]
     Active Substance: IBUPROFEN
  3. VITAMIN D [Concomitant]
     Active Substance: CHOLECALCIFEROL
  4. STOOL SOFTENER (DOCUSATE) [Concomitant]
     Active Substance: DOCUSATE
  5. MULTIVITAMINS [Concomitant]
     Active Substance: VITAMINS
  6. PROTONIX [Concomitant]
     Active Substance: PANTOPRAZOLE SODIUM
  7. IMBRUVICA [Suspect]
     Active Substance: IBRUTINIB
     Indication: CHRONIC LYMPHOCYTIC LEUKAEMIA
     Route: 048
     Dates: start: 20170302
  8. MELATONIN [Concomitant]
     Active Substance: MELATONIN
  9. ALBUTEROL. [Concomitant]
     Active Substance: ALBUTEROL
  10. SYNTHROID [Concomitant]
     Active Substance: LEVOTHYROXINE SODIUM
  11. CRANBERRY. [Concomitant]
     Active Substance: CRANBERRY
  12. ELIQUIS [Concomitant]
     Active Substance: APIXABAN
  13. BENADRYL [Concomitant]
     Active Substance: DIPHENHYDRAMINE HYDROCHLORIDE
  14. MILK OF MAGNESIA [Concomitant]
     Active Substance: MAGNESIUM HYDROXIDE

REACTIONS (1)
  - Cardiac failure acute [Recovering/Resolving]

NARRATIVE: CASE EVENT DATE: 2017
